FAERS Safety Report 17429047 (Version 1)
Quarter: 2020Q1

REPORT INFORMATION
  Report Type: Spontaneous
  Country: ES (occurrence: ES)
  Receive Date: 20200217
  Receipt Date: 20200217
  Transmission Date: 20200409
  Serious: Yes (Other)
  Sender: FDA-Public Use
  Company Number: ES-SAMSUNG BIOEPIS-SB-2020-04625

PATIENT
  Age: 62 Year
  Sex: Female

DRUGS (1)
  1. IMRALDI [Suspect]
     Active Substance: ADALIMUMAB
     Indication: ARTHRITIS
     Dosage: 40MG EVERY 15 DAYS, 2 PRE-FILLED PENS OF 0.8 ML
     Route: 058
     Dates: start: 20191014, end: 20191014

REACTIONS (2)
  - Skin reaction [Recovering/Resolving]
  - Product use in unapproved indication [Unknown]

NARRATIVE: CASE EVENT DATE: 20191014
